FAERS Safety Report 4412789-6 (Version None)
Quarter: 2004Q3

REPORT INFORMATION
  Report Type: 
  Country: None (occurrence: None)
  Receive Date: 20040730
  Receipt Date: 20040730
  Transmission Date: 20050211
  Serious: Yes (Other)
  Sender: FDA-Public Use
  Company Number: None

PATIENT
  Age: 75 Year
  Sex: Male
  Weight: 81.3 kg

DRUGS (16)
  1. SPIRONOLACTONE [Suspect]
  2. ENALAPRIL MALEATE [Suspect]
  3. HUMULIN N [Concomitant]
  4. EPOETIN ALFA [Concomitant]
  5. BUMETANIDE [Concomitant]
  6. ISOSORBIDE MONONITRATE [Concomitant]
  7. SPIRONOLACTONE [Concomitant]
  8. FINASTERIDE [Concomitant]
  9. GEMFIBROZIL [Concomitant]
  10. CARVEDILOL [Concomitant]
  11. TERAZOSIN HCL [Concomitant]
  12. LANOXIN [Concomitant]
  13. COLCHICINE [Concomitant]
  14. ENALAPRIL MALEATE [Concomitant]
  15. IRON POLYSACCHARIDE COMPLEX [Concomitant]
  16. DOCUSATE CA [Concomitant]

REACTIONS (1)
  - HYPERKALAEMIA [None]
